FAERS Safety Report 17251343 (Version 1)
Quarter: 2019Q4

REPORT INFORMATION
  Report Type: Spontaneous
  Country: US (occurrence: US)
  Receive Date: 20191216
  Receipt Date: 20191216
  Transmission Date: 20200122
  Serious: No
  Sender: FDA-Public Use
  Company Number: None

PATIENT
  Age: 49 Year
  Sex: Female

DRUGS (1)
  1. DUPIXENT [Suspect]
     Active Substance: DUPILUMAB
     Indication: DERMATITIS ATOPIC
     Dosage: ?          OTHER DOSE:300MG/2ML SYR;OTHER FREQUENCY:QTY 4;?
     Dates: start: 20190920

REACTIONS (2)
  - Dermatitis [None]
  - Rash [None]

NARRATIVE: CASE EVENT DATE: 20191216
